FAERS Safety Report 10186073 (Version 1)
Quarter: 2014Q2

REPORT INFORMATION
  Report Type: Spontaneous
  Country: US (occurrence: US)
  Receive Date: 20140521
  Receipt Date: 20140521
  Transmission Date: 20141212
  Serious: No
  Sender: FDA-Public Use
  Company Number: US-TEVA-483185USA

PATIENT
  Sex: Female

DRUGS (1)
  1. PARAGARD 380A [Suspect]
     Indication: CONTRACEPTION
     Route: 015

REACTIONS (4)
  - Weight decreased [Unknown]
  - Therapeutic response changed [Unknown]
  - Vaginal discharge [Recovered/Resolved]
  - Menorrhagia [Recovered/Resolved]
